FAERS Safety Report 9547884 (Version 1)
Quarter: 2013Q3

REPORT INFORMATION
  Report Type: Spontaneous
  Country: US (occurrence: None)
  Receive Date: 20130719
  Receipt Date: 20130719
  Transmission Date: 20140515
  Serious: Yes (Hospitalization, Other)
  Sender: FDA-Public Use
  Company Number: 2012BAX015992

PATIENT
  Age: 54 Year
  Sex: Female
  Weight: 75 kg

DRUGS (5)
  1. CYCLOPHOSPHAMIDE [Suspect]
     Indication: DIFFUSE LARGE B-CELL LYMPHOMA
     Dosage: 12754 NGM CYCLIC; DAY 1, INTRAVENOUS
     Route: 042
     Dates: start: 20120412, end: 20120727
  2. RITUXIMAB (RITUXIMAB) [Suspect]
     Indication: DIFFUSE LARGE B-CELL LYMPHOMA
     Dosage: 632 MG, CYCLIC,; DAY 1, INTRAVENOUS
     Route: 042
     Dates: start: 20120412, end: 20120727
  3. DOXORUBICIN [Suspect]
     Indication: DIFFUSE LARGE B-CELL LYMPHOMA
     Dosage: 85 MG, CYCLIC; DAY 1, INTRAVENOUS
     Route: 042
     Dates: start: 20120412, end: 20120727
  4. PREDNISONE [Suspect]
     Indication: DIFFUSE LARGE B-CELL LYMPHOMA
     Dosage: 100 MG, CYCLIC; 5 DAYS DURING CYCLE, ORAL
     Route: 048
     Dates: start: 20120412, end: 20120731
  5. VINCRISTINE [Suspect]
     Indication: DIFFUSE LARGE B-CELL LYMPHOMA
     Dosage: 2 MG, CYCLIC; DAY 1, INTRAVENOUS
     Route: 042
     Dates: start: 20120412, end: 20120727

REACTIONS (1)
  - Febrile neutropenia [None]
